FAERS Safety Report 6362285-4 (Version None)
Quarter: 2009Q3

REPORT INFORMATION
  Report Type: 
  Country: None (occurrence: None)
  Receive Date: 20090918
  Receipt Date: 20090805
  Transmission Date: 20100115
  Serious: No
  Sender: FDA-Public Use
  Company Number: US-ABBOTT-09P-163-0589737-00

PATIENT
  Sex: Male
  Weight: 122.58 kg

DRUGS (4)
  1. HUMIRA [Suspect]
     Indication: PSORIASIS
     Dates: start: 20090708, end: 20090805
  2. HUMIRA [Suspect]
     Dosage: PEN
     Dates: start: 20090805
  3. BLOOD PRESSURE PILLS [Concomitant]
     Indication: BLOOD PRESSURE
  4. ORAL DIABETIC MEDS [Concomitant]
     Indication: DIABETES MELLITUS
     Route: 048

REACTIONS (1)
  - DRUG INEFFECTIVE [None]
